FAERS Safety Report 15276738 (Version 1)
Quarter: 2018Q3

REPORT INFORMATION
  Report Type: Spontaneous
  Country: US (occurrence: US)
  Receive Date: 20180729
  Receipt Date: 20180729
  Transmission Date: 20181010
  Serious: Yes (Hospitalization, Disabling)
  Sender: FDA-Public Use
  Company Number: None

PATIENT
  Age: 72 Year
  Sex: Male
  Weight: 63 kg

DRUGS (1)
  1. LUPRON [Suspect]
     Active Substance: LEUPROLIDE ACETATE
     Indication: PROSTATE CANCER
     Dates: start: 20151218, end: 20160320

REACTIONS (15)
  - Vomiting [None]
  - Hydrocephalus [None]
  - Depression [None]
  - Osteoporosis [None]
  - Bone pain [None]
  - Prostatic specific antigen decreased [None]
  - Muscle atrophy [None]
  - Fatigue [None]
  - Hypersomnia [None]
  - Asthenia [None]
  - Bone density decreased [None]
  - Loss of employment [None]
  - Quality of life decreased [None]
  - Cholecystitis [None]
  - Confusional state [None]

NARRATIVE: CASE EVENT DATE: 20171001
